FAERS Safety Report 17396046 (Version 3)
Quarter: 2020Q1

REPORT INFORMATION
  Report Type: Spontaneous
  Country: US (occurrence: US)
  Receive Date: 20200210
  Receipt Date: 20200316
  Transmission Date: 20200409
  Serious: Yes (Hospitalization)
  Sender: FDA-Public Use
  Company Number: US-VERTEX PHARMACEUTICALS-2020-002083

PATIENT
  Age: 25 Year
  Sex: Male

DRUGS (34)
  1. TRIKAFTA [Suspect]
     Active Substance: ELEXACAFTOR\IVACAFTOR\TEZACAFTOR
     Indication: CYSTIC FIBROSIS
     Dosage: 100 MG ELEXACAFTOR/ 50 MG TEZACAFTOR/ 75 MG IVACAFTOR (2 TABS IN AM); 150MG IVACAFTOR (1 TAB IN PM)
     Route: 048
     Dates: start: 201911
  2. VIMPAT [Concomitant]
     Active Substance: LACOSAMIDE
  3. ZOFRAN [Concomitant]
     Active Substance: ONDANSETRON HYDROCHLORIDE
  4. BETHKIS [Concomitant]
     Active Substance: TOBRAMYCIN
  5. LORAZEPAM. [Concomitant]
     Active Substance: LORAZEPAM
  6. SODIUM CHLORIDE. [Concomitant]
     Active Substance: SODIUM CHLORIDE
  7. SEROQUEL [Concomitant]
     Active Substance: QUETIAPINE FUMARATE
  8. HUMALOG [Concomitant]
     Active Substance: INSULIN LISPRO
  9. ZENPEP [Concomitant]
     Active Substance: PANCRELIPASE AMYLASE\PANCRELIPASE LIPASE\PANCRELIPASE PROTEASE
  10. KLOR-CON M20 [Concomitant]
     Active Substance: POTASSIUM CHLORIDE
  11. KEPPRA [Concomitant]
     Active Substance: LEVETIRACETAM
  12. XOPENEX [Concomitant]
     Active Substance: LEVALBUTEROL HYDROCHLORIDE
  13. LAMICTAL [Concomitant]
     Active Substance: LAMOTRIGINE
  14. NOVOLOG [Concomitant]
     Active Substance: INSULIN ASPART
  15. FERROUS SULFATE. [Concomitant]
     Active Substance: FERROUS SULFATE
  16. MEGACE ES [Concomitant]
     Active Substance: MEGESTROL ACETATE
  17. LEVEMIR [Concomitant]
     Active Substance: INSULIN DETEMIR
  18. LORATADINE. [Concomitant]
     Active Substance: LORATADINE
  19. VITAMIN D 2000 [Concomitant]
     Active Substance: VITAMIN D NOS
  20. MONTELUKAST [Concomitant]
     Active Substance: MONTELUKAST SODIUM
  21. AZITHROMYCIN ANHYDROUS. [Concomitant]
     Active Substance: AZITHROMYCIN ANHYDROUS
  22. PULMOZYME [Concomitant]
     Active Substance: DORNASE ALFA
  23. VITAMIN B12 [COBAMAMIDE] [Concomitant]
  24. CAYSTON [Concomitant]
     Active Substance: AZTREONAM
  25. PROTONIX [OMEPRAZOLE] [Concomitant]
     Active Substance: OMEPRAZOLE
  26. OXYCODONE [Concomitant]
     Active Substance: OXYCODONE
  27. SCANDISHAKE MIX [Concomitant]
     Active Substance: DIETARY SUPPLEMENT
  28. NASONEX [Concomitant]
     Active Substance: MOMETASONE FUROATE
  29. PREVACID [Concomitant]
     Active Substance: LANSOPRAZOLE
  30. GLUCERNA [Concomitant]
     Active Substance: AMINO ACIDS\DEXTROSE\ELECTROLYTES NOS\SOYBEAN OIL\VITAMINS
  31. SUBOXONE [Suspect]
     Active Substance: BUPRENORPHINE HYDROCHLORIDE\NALOXONE HYDROCHLORIDE
     Route: 065
  32. PROMETHAZINE [Concomitant]
     Active Substance: PROMETHAZINE HYDROCHLORIDE
  33. MAGNESIUM [Concomitant]
     Active Substance: MAGNESIUM
  34. SPIRIVA [Concomitant]
     Active Substance: TIOTROPIUM BROMIDE MONOHYDRATE

REACTIONS (3)
  - Respiratory disorder [Unknown]
  - Somnolence [Unknown]
  - Fatigue [Unknown]

NARRATIVE: CASE EVENT DATE: 202001
